FAERS Safety Report 12144104 (Version 1)
Quarter: 2016Q1

REPORT INFORMATION
  Report Type: Spontaneous
  Country: US (occurrence: US)
  Receive Date: 20160304
  Receipt Date: 20160304
  Transmission Date: 20160526
  Serious: Yes (Hospitalization)
  Sender: FDA-Public Use
  Company Number: US-009507513-1603USA002139

PATIENT
  Age: 32 Year
  Sex: Female

DRUGS (9)
  1. PEGASYS [Suspect]
     Active Substance: PEGINTERFERON ALFA-2A
     Indication: CHRONIC HEPATITIS C
     Dosage: PREFILLED SYRINGE (180 MICROGRAM, 1 IN 1 WK)
     Route: 058
     Dates: start: 20130820
  2. VICTRELIS [Suspect]
     Active Substance: BOCEPREVIR
     Indication: CHRONIC HEPATITIS C
     Dosage: FOUR 200MG TABLETS, TID
     Route: 048
     Dates: start: 201308
  3. COPEGUS [Suspect]
     Active Substance: RIBAVIRIN
     Indication: CHRONIC HEPATITIS C
     Dosage: 5 TABLETS, 400MG (2 TABLETS) IN AM AND 600MG (3 TABLETS)  IN PM
     Route: 048
     Dates: start: 20130820
  4. ALPRAZOLAM HYDROBROMIDE [Concomitant]
     Dosage: 0.5 MG, UNK
  5. CELEXA [Concomitant]
     Active Substance: CITALOPRAM HYDROBROMIDE
  6. LEXAPRO [Concomitant]
     Active Substance: ESCITALOPRAM OXALATE
     Dosage: 5 MG, QD
  7. PRAZOSIN [Concomitant]
     Active Substance: PRAZOSIN
  8. COPEGUS [Suspect]
     Active Substance: RIBAVIRIN
     Dosage: 200MG, BID, TOOK IN AM
     Route: 065
     Dates: start: 20131211
  9. TRAZADOL [Concomitant]
     Dosage: 50 MG, QD

REACTIONS (3)
  - Anaemia [Recovered/Resolved]
  - Syncope [Recovered/Resolved]
  - Pallor [Recovered/Resolved]

NARRATIVE: CASE EVENT DATE: 201308
